FAERS Safety Report 7957845-0 (Version None)
Quarter: 2011Q4

REPORT INFORMATION
  Report Type: 
  Country: None (occurrence: None)
  Receive Date: 20111205
  Receipt Date: 20111129
  Transmission Date: 20120403
  Serious: Yes (Other)
  Sender: FDA-Public Use
  Company Number: JP-BRACCO-005476

PATIENT
  Age: 60 Year
  Sex: Female

DRUGS (2)
  1. PROHANCE [Suspect]
     Indication: METASTASIS
     Route: 040
     Dates: start: 20110511, end: 20110511
  2. PROHANCE [Suspect]
     Indication: DIAGNOSTIC PROCEDURE
     Route: 040
     Dates: start: 20110511, end: 20110511

REACTIONS (1)
  - SHOCK [None]
